FAERS Safety Report 16698512 (Version 1)
Quarter: 2019Q3

REPORT INFORMATION
  Report Type: Report from Study
  Country: FR (occurrence: FR)
  Receive Date: 20190813
  Receipt Date: 20190813
  Transmission Date: 20191004
  Serious: Yes (Hospitalization)
  Sender: FDA-Public Use
  Company Number: FR-BAXTER-2019BAX015761

PATIENT
  Sex: Male
  Weight: 55 kg

DRUGS (6)
  1. ENDOXAN 50 MG, COMPRIM? ENROB? [Suspect]
     Active Substance: CYCLOPHOSPHAMIDE
     Dosage: LAST DOSE PRIOR TO SAE, 16 CYCLES PERFORMED, CUMULATIVE DOSE RECEIVED: 20100 MG.
     Route: 048
     Dates: start: 20190716, end: 20190716
  2. ENDOXAN 50 MG, COMPRIM? ENROB? [Suspect]
     Active Substance: CYCLOPHOSPHAMIDE
     Indication: PRODUCT USED FOR UNKNOWN INDICATION
     Route: 048
     Dates: start: 20180812
  3. METHOTREXATE SODIUM. [Suspect]
     Active Substance: METHOTREXATE SODIUM
     Dosage: LAST DOSE PRIOR TO SAE, 16 CYCLES PERFORMED, CUMULATIVE DOSE RECEIVED: 160 MG
     Route: 048
     Dates: start: 20190718, end: 20190718
  4. SIROLIMUS. [Suspect]
     Active Substance: SIROLIMUS
     Indication: PRODUCT USED FOR UNKNOWN INDICATION
     Route: 048
     Dates: start: 20180612
  5. SIROLIMUS. [Suspect]
     Active Substance: SIROLIMUS
     Dosage: LAST DOSE PRIOR TO SAE, 16 CYCLES PERFORMED, CUMULATIVE DOSE RECEIVED: 1610 MG
     Route: 048
     Dates: start: 20190719, end: 20190719
  6. METHOTREXATE SODIUM. [Suspect]
     Active Substance: METHOTREXATE SODIUM
     Indication: PRODUCT USED FOR UNKNOWN INDICATION
     Route: 048
     Dates: start: 20180612

REACTIONS (1)
  - Hyperthermia [Unknown]

NARRATIVE: CASE EVENT DATE: 20190719
